FAERS Safety Report 5922183-4 (Version None)
Quarter: 2008Q4

REPORT INFORMATION
  Report Type: 
  Country: None (occurrence: None)
  Receive Date: 20081017
  Receipt Date: 20081007
  Transmission Date: 20090506
  Serious: Yes (Hospitalization)
  Sender: FDA-Public Use
  Company Number: US-JNJFOC-20081001871

PATIENT
  Age: 43 Year
  Sex: Male
  Weight: 122.47 kg

DRUGS (16)
  1. TYLENOL (CAPLET) [Suspect]
     Route: 048
  2. TYLENOL (CAPLET) [Suspect]
     Indication: ARTHRALGIA
     Route: 048
  3. ACTOS [Concomitant]
     Indication: DIABETES MELLITUS
  4. METFORMIN HCL [Concomitant]
     Indication: DIABETES MELLITUS
  5. TRICOR [Concomitant]
     Indication: BLOOD CHOLESTEROL INCREASED
  6. FLEXERIL [Concomitant]
     Indication: MUSCLE SPASMS
  7. PRILOSEC [Concomitant]
     Indication: GASTROOESOPHAGEAL REFLUX DISEASE
  8. TOPAMAX [Concomitant]
     Indication: MIGRAINE
  9. TRAZODONE HCL [Concomitant]
     Indication: DEPRESSION
     Dosage: AS NEEDED
  10. INVEGA ER [Concomitant]
     Indication: PSYCHOTIC DISORDER
     Dosage: AT BEDTIME
  11. COUMADIN [Concomitant]
     Indication: ANTICOAGULANT THERAPY
  12. PREDNISONE TAB [Concomitant]
     Indication: RESPIRATORY DISORDER
  13. SYMBICORT [Concomitant]
     Indication: CHRONIC OBSTRUCTIVE PULMONARY DISEASE
     Dosage: 2 PUFFS DAILY
  14. ALBUTEROL [Concomitant]
     Indication: CHRONIC OBSTRUCTIVE PULMONARY DISEASE
     Dosage: 2 PUFFS, AS NEEDED
  15. LANTUS [Concomitant]
     Dosage: 200 UNITS IN THE MORNING
  16. HUMULIN R [Concomitant]
     Indication: DIABETES MELLITUS
     Dosage: AS NECESSARY FOR COVERAGE

REACTIONS (1)
  - PULMONARY EMBOLISM [None]
